FAERS Safety Report 10917022 (Version 2)
Quarter: 2015Q2

REPORT INFORMATION
  Report Type: Spontaneous
  Country: US (occurrence: US)
  Receive Date: 20150316
  Receipt Date: 20150524
  Transmission Date: 20150821
  Serious: Yes (Hospitalization)
  Sender: FDA-Public Use
  Company Number: US-JNJFOC-20150114564

PATIENT
  Sex: Male
  Weight: 81.65 kg

DRUGS (2)
  1. LUPRON [Suspect]
     Active Substance: LEUPROLIDE ACETATE
     Indication: PRODUCT USED FOR UNKNOWN INDICATION
     Route: 065
  2. ZYTIGA [Suspect]
     Active Substance: ABIRATERONE ACETATE
     Indication: PROSTATE CANCER
     Route: 048
     Dates: start: 201403, end: 201412

REACTIONS (11)
  - Hormone level abnormal [Unknown]
  - Somnolence [Unknown]
  - White blood cell count increased [Unknown]
  - Night sweats [Unknown]
  - Burning sensation [Unknown]
  - Haemoglobin decreased [Unknown]
  - Joint swelling [Unknown]
  - Hypertension [Recovered/Resolved]
  - Abnormal loss of weight [Unknown]
  - Tremor [Unknown]
  - Chills [Unknown]

NARRATIVE: CASE EVENT DATE: 2014
